FAERS Safety Report 8844317 (Version 2)
Quarter: 2012Q4

REPORT INFORMATION
  Report Type: 
  Country: US (occurrence: US)
  Receive Date: 20121017
  Receipt Date: 20121120
  Transmission Date: 20130627
  Serious: Yes (Other)
  Sender: FDA-Public Use
  Company Number: US-SANOFI-AVENTIS-2012SA074486

PATIENT
  Age: 38 Year
  Sex: Male

DRUGS (2)
  1. LANTUS [Suspect]
     Indication: DIABETES
     Dosage: Dose:35 unit(s)
     Route: 058
     Dates: start: 20120913
  2. SOLOSTAR [Suspect]
     Indication: DIABETES
     Route: 058
     Dates: start: 20120913

REACTIONS (2)
  - Cerebrovascular accident [Unknown]
  - Injection site bruising [Recovered/Resolved]
